FAERS Safety Report 12201602 (Version 1)
Quarter: 2016Q1

REPORT INFORMATION
  Report Type: Spontaneous
  Country: US (occurrence: US)
  Receive Date: 20160322
  Receipt Date: 20160322
  Transmission Date: 20160526
  Serious: No
  Sender: FDA-Public Use
  Company Number: US-SA-2015SA120773

PATIENT
  Age: 93 Year
  Sex: Female

DRUGS (1)
  1. NASACORT ALLERGY 24HR [Suspect]
     Active Substance: TRIAMCINOLONE ACETONIDE
     Indication: DYSPNOEA
     Dosage: DOSE: 55MCG/ACTUATION?FREQUENCY: 2 SPRAYS/ NOSTRIL/ DAY
     Dates: start: 20150805, end: 20150808

REACTIONS (1)
  - Hypertension [Recovered/Resolved]

NARRATIVE: CASE EVENT DATE: 20150806
